FAERS Safety Report 9730909 (Version 2)
Quarter: 2014Q1

REPORT INFORMATION
  Report Type: Spontaneous
  Country: US (occurrence: US)
  Receive Date: 20131205
  Receipt Date: 20140226
  Transmission Date: 20141002
  Serious: No
  Sender: FDA-Public Use
  Company Number: US-B.I. PHARMACEUTICALS,INC./RIDGEFIELD-2013-BI-38780BP

PATIENT
  Age: 69 Year
  Sex: Female
  Weight: 70 kg

DRUGS (6)
  1. SPIRIVA [Suspect]
     Indication: CHRONIC OBSTRUCTIVE PULMONARY DISEASE
     Dosage: 18 MCG
     Route: 055
     Dates: start: 201004
  2. MELOXICAM [Concomitant]
     Indication: BACK PAIN
     Dosage: 7.5 MG
     Route: 048
     Dates: start: 2012
  3. DILTIAZEM ER [Concomitant]
     Indication: HYPERTENSION
     Dosage: 180 MG
     Route: 048
     Dates: start: 2010
  4. HYDROCHLOROTHIAZIDE [Concomitant]
     Indication: FLUID RETENTION
     Dosage: 25 MG
     Route: 048
     Dates: start: 2012
  5. ATORVASTATIN [Concomitant]
     Indication: BLOOD CHOLESTEROL INCREASED
     Dosage: 20 MG
     Route: 048
     Dates: start: 2012
  6. CYCLOPHOSPHAMIDE [Concomitant]
     Indication: PULMONARY SARCOIDOSIS
     Dosage: 100 MG
     Route: 048
     Dates: start: 201201

REACTIONS (4)
  - Dyspnoea [Not Recovered/Not Resolved]
  - Product quality issue [Unknown]
  - Product quality issue [Unknown]
  - Product quality issue [Unknown]
